FAERS Safety Report 19056871 (Version 1)
Quarter: 2021Q1

REPORT INFORMATION
  Report Type: Spontaneous
  Country: AR (occurrence: AR)
  Receive Date: 20210325
  Receipt Date: 20210325
  Transmission Date: 20210420
  Serious: Yes (Death)
  Sender: FDA-Public Use
  Company Number: AR-PFIZER INC-2021323778

PATIENT
  Age: 86 Year
  Sex: Male

DRUGS (1)
  1. XELJANZ [Suspect]
     Active Substance: TOFACITINIB CITRATE

REACTIONS (1)
  - Death [Fatal]

NARRATIVE: CASE EVENT DATE: 20210323
